FAERS Safety Report 5537254-4 (Version None)
Quarter: 2007Q4

REPORT INFORMATION
  Report Type: 
  Country: None (occurrence: None)
  Receive Date: 20071207
  Receipt Date: 20071129
  Transmission Date: 20080405
  Serious: Yes (Other)
  Sender: FDA-Public Use
  Company Number: US-GENENTECH-252091

PATIENT
  Sex: Female

DRUGS (2)
  1. AVASTIN [Suspect]
     Indication: BREAST CANCER
     Dosage: UNK, Q2W
     Route: 042
  2. ABRAXANE [Concomitant]
     Indication: BREAST CANCER
     Dosage: UNK, UNKNOWN
     Route: 065

REACTIONS (1)
  - EJECTION FRACTION DECREASED [None]
